FAERS Safety Report 23428226 (Version 8)
Quarter: 2024Q3

REPORT INFORMATION
  Report Type: Spontaneous
  Country: US (occurrence: US)
  Receive Date: 20240122
  Receipt Date: 20240906
  Transmission Date: 20241017
  Serious: Yes (Hospitalization, Other)
  Sender: PFIZER
  Company Number: US-PFIZER INC-202300369781

PATIENT
  Age: 7 Year
  Sex: Male
  Weight: 20.41 kg

DRUGS (5)
  1. OXBRYTA [Suspect]
     Active Substance: VOXELOTOR
     Indication: Sickle cell disease
     Dosage: FOR ORAL SUSPENSION
     Route: 048
     Dates: start: 202311
  2. OXBRYTA [Suspect]
     Active Substance: VOXELOTOR
     Indication: Thalassaemia
     Dosage: 600 MG, 1X/DAY
     Route: 048
     Dates: start: 20231103
  3. OXBRYTA [Suspect]
     Active Substance: VOXELOTOR
     Dosage: 300MG ORAL SUSPENSION 1 TABLET ONCE DAILY, ORALLY
     Route: 048
     Dates: start: 202311
  4. PENICILLIN G [Concomitant]
     Active Substance: PENICILLIN G
     Indication: Sickle cell disease
     Dosage: 5 MG, 2X/DAY
  5. HYDROXYUREA [Concomitant]
     Active Substance: HYDROXYUREA
     Dosage: UNK

REACTIONS (12)
  - Sickle cell anaemia with crisis [Recovered/Resolved]
  - Viral infection [Unknown]
  - Haemoglobin decreased [Recovered/Resolved]
  - Mental impairment [Unknown]
  - Off label use [Unknown]
  - Increased appetite [Unknown]
  - Energy increased [Unknown]
  - Euphoric mood [Unknown]
  - White blood cell count increased [Unknown]
  - Memory impairment [Recovered/Resolved]
  - Brain fog [Unknown]
  - Product prescribing issue [Unknown]

NARRATIVE: CASE EVENT DATE: 20240101
